FAERS Safety Report 10014562 (Version 2)
Quarter: 2014Q3

REPORT INFORMATION
  Report Type: Spontaneous
  Country: US (occurrence: US)
  Receive Date: 20140317
  Receipt Date: 20140707
  Transmission Date: 20150326
  Serious: No
  Sender: FDA-Public Use
  Company Number: US-009507513-1403USA001647

PATIENT
  Sex: Female
  Weight: 100.68 kg

DRUGS (2)
  1. OXYTROL FOR WOMEN [Suspect]
     Active Substance: OXYBUTYNIN
     Indication: URINARY INCONTINENCE
     Dosage: 1 DF, QOD
     Route: 062
     Dates: start: 201401
  2. TOVIAZ [Concomitant]
     Active Substance: FESOTERODINE FUMARATE
     Indication: AUTOMATIC BLADDER
     Dosage: UNK, UNKNOWN

REACTIONS (3)
  - Inappropriate schedule of drug administration [Unknown]
  - Off label use [Unknown]
  - Drug effect decreased [Unknown]

NARRATIVE: CASE EVENT DATE: 2014
